FAERS Safety Report 21148393 (Version 2)
Quarter: 2022Q3

REPORT INFORMATION
  Report Type: Spontaneous
  Country: US (occurrence: US)
  Receive Date: 20220729
  Receipt Date: 20220812
  Transmission Date: 20221027
  Serious: No
  Sender: FDA-Public Use
  Company Number: US-BRISTOL-MYERS SQUIBB COMPANY-2022-081811

PATIENT
  Age: 72 Year
  Sex: Female

DRUGS (1)
  1. ORENCIA [Suspect]
     Active Substance: ABATACEPT
     Indication: Product used for unknown indication
     Route: 058
     Dates: start: 20220602

REACTIONS (5)
  - Tooth disorder [Unknown]
  - Back pain [Unknown]
  - Abdominal pain upper [Unknown]
  - Flatulence [Unknown]
  - Dizziness [Unknown]

NARRATIVE: CASE EVENT DATE: 20220602
